FAERS Safety Report 5921881-6 (Version None)
Quarter: 2008Q4

REPORT INFORMATION
  Report Type: 
  Country: None (occurrence: None)
  Receive Date: 20081017
  Receipt Date: 20081006
  Transmission Date: 20090506
  Serious: Yes (Hospitalization, Other)
  Sender: FDA-Public Use
  Company Number: US-ROCHE-543818

PATIENT
  Sex: Female

DRUGS (8)
  1. PEGASYS [Suspect]
     Indication: HEPATITIS C
     Dosage: ROUTE REPORTED AS PRE FILLED SYRINGE (PFS), DOES NOT REMEMBER DOSE, ON THERAPY FOR 3-4 MONTHS.
     Route: 065
     Dates: start: 20040101
  2. PEGASYS [Suspect]
     Route: 065
     Dates: start: 20080617, end: 20081002
  3. COPEGUS [Suspect]
     Indication: HEPATITIS C
     Dosage: DOES NOT REMEMBER DOSE, ON THERAPY FOR 3-4 MONTHS, FORM: PILL.
     Route: 065
     Dates: start: 20040101
  4. COPEGUS [Suspect]
     Route: 065
     Dates: start: 20080617, end: 20081002
  5. PEG-INTRON [Suspect]
     Indication: HEPATITIS C
     Route: 065
  6. ZOLOFT [Concomitant]
  7. TYLENOL W/ CODEINE [Concomitant]
  8. 1 CONCOMITANT UNSPECIFIED DRUG [Concomitant]
     Dosage: REPORTED AS MEDICATION FOR HERPES ZOSTER

REACTIONS (13)
  - AMNESIA [None]
  - ARTHRALGIA [None]
  - CHILLS [None]
  - CRYOGLOBULINAEMIA [None]
  - HEPATITIS C [None]
  - HYPERHIDROSIS [None]
  - HYPOAESTHESIA [None]
  - PANCYTOPENIA [None]
  - PERONEAL NERVE PALSY [None]
  - PNEUMONIA [None]
  - PULMONARY HAEMORRHAGE [None]
  - VISUAL ACUITY REDUCED [None]
  - WEIGHT DECREASED [None]
